FAERS Safety Report 20583431 (Version 1)
Quarter: 2022Q1

REPORT INFORMATION
  Report Type: Spontaneous
  Country: US (occurrence: US)
  Receive Date: 20220311
  Receipt Date: 20220311
  Transmission Date: 20220423
  Serious: No
  Sender: FDA-Public Use
  Company Number: US-FRESENIUS KABI-FK202202793

PATIENT

DRUGS (1)
  1. DOXY 100 [Suspect]
     Active Substance: DOXYCYCLINE HYCLATE
     Indication: Product used for unknown indication
     Route: 065

REACTIONS (1)
  - Wound [Unknown]

NARRATIVE: CASE EVENT DATE: 20220301
